FAERS Safety Report 18365096 (Version 1)
Quarter: 2020Q4

REPORT INFORMATION
  Report Type: Report from Study
  Country: HK (occurrence: HK)
  Receive Date: 20201009
  Receipt Date: 20201009
  Transmission Date: 20210114
  Serious: Yes (Death, Other)
  Sender: FDA-Public Use
  Company Number: HK-VISTAPHARM, INC.-VER202010-001684

PATIENT
  Sex: Female

DRUGS (1)
  1. VALPROIC ACID. [Suspect]
     Active Substance: VALPROIC ACID
     Indication: STATUS EPILEPTICUS
     Dosage: 1200 MG DAILY

REACTIONS (3)
  - Hyperammonaemic encephalopathy [Unknown]
  - Coma [Unknown]
  - Multiple organ dysfunction syndrome [Fatal]
